FAERS Safety Report 8282772-1 (Version None)
Quarter: 2012Q2

REPORT INFORMATION
  Report Type: 
  Country: None (occurrence: None)
  Receive Date: 20120413
  Receipt Date: 20120410
  Transmission Date: 20120825
  Serious: Yes (Other)
  Sender: FDA-Public Use
  Company Number: US-PFIZER INC-2012042369

PATIENT
  Sex: Female
  Weight: 66.667 kg

DRUGS (3)
  1. CELEBREX [Suspect]
     Indication: COSTOCHONDRITIS
     Dosage: 100 MG, 2X/DAY
     Route: 048
     Dates: start: 20120204, end: 20120214
  2. SINGULAIR [Concomitant]
     Indication: ASTHMA
     Dosage: 10 MG, DAILY
     Dates: start: 20110101
  3. MULTI-VITAMINS [Concomitant]
     Dosage: UNK

REACTIONS (5)
  - OEDEMA PERIPHERAL [None]
  - DIARRHOEA [None]
  - ABDOMINAL PAIN [None]
  - VOMITING [None]
  - LIVER DISORDER [None]
